FAERS Safety Report 13656651 (Version 3)
Quarter: 2017Q4

REPORT INFORMATION
  Report Type: Spontaneous
  Country: IT (occurrence: IT)
  Receive Date: 20170615
  Receipt Date: 20171005
  Transmission Date: 20180320
  Serious: Yes (Hospitalization)
  Sender: FDA-Public Use
  Company Number: IT-PFIZER INC-2017261732

PATIENT
  Age: 41 Year
  Sex: Female

DRUGS (4)
  1. ESCITALOPRAM OXALATE. [Suspect]
     Active Substance: ESCITALOPRAM OXALATE
     Indication: DEPRESSION
     Dosage: 6 DF, TOTAL
     Route: 048
     Dates: start: 20170430, end: 20170430
  2. CARBOLITHIUM [Concomitant]
     Active Substance: LITHIUM CARBONATE
  3. LORAZEPAM. [Suspect]
     Active Substance: LORAZEPAM
     Indication: ANXIETY
     Dosage: 10 ML, TOTAL
     Route: 048
     Dates: start: 20170430, end: 20170430
  4. QUETIAPINE FUMARATE. [Concomitant]
     Active Substance: QUETIAPINE FUMARATE

REACTIONS (5)
  - Drug abuse [Recovered/Resolved]
  - Electrocardiogram QT prolonged [Recovered/Resolved]
  - Intentional self-injury [Recovered/Resolved]
  - Slow speech [Recovered/Resolved]
  - Sopor [Recovered/Resolved]

NARRATIVE: CASE EVENT DATE: 20170430
